FAERS Safety Report 8065045-1 (Version None)
Quarter: 2012Q1

REPORT INFORMATION
  Report Type: 
  Country: None (occurrence: None)
  Receive Date: 20120124
  Receipt Date: 20120120
  Transmission Date: 20120608
  Serious: No
  Sender: FDA-Public Use
  Company Number: US-PFIZER INC-2012017189

PATIENT
  Sex: Female
  Weight: 101.59 kg

DRUGS (6)
  1. VALIUM [Concomitant]
     Dosage: UNK
  2. NAPROXEN [Concomitant]
     Dosage: UNK
  3. TRAMADOL [Concomitant]
     Dosage: UNK
  4. SINGULAIR [Concomitant]
     Dosage: UNK
  5. METFORMIN [Concomitant]
     Dosage: UNK
  6. FLECTOR [Suspect]
     Indication: MUSCULOSKELETAL PAIN
     Dosage: UNK
     Route: 062
     Dates: start: 20120118, end: 20120119

REACTIONS (8)
  - NASOPHARYNGITIS [None]
  - SINUS DISORDER [None]
  - HYPERSENSITIVITY [None]
  - PRURITUS [None]
  - DYSPNOEA [None]
  - THROAT IRRITATION [None]
  - EYE SWELLING [None]
  - RHINORRHOEA [None]
